FAERS Safety Report 25980113 (Version 1)
Quarter: 2025Q4

REPORT INFORMATION
  Report Type: Spontaneous
  Country: US (occurrence: US)
  Receive Date: 20251030
  Receipt Date: 20251030
  Transmission Date: 20260118
  Serious: No
  Sender: MYLAN
  Company Number: US-MYLANLABS-2025M1088999

PATIENT
  Sex: Female
  Weight: 69.85 kg

DRUGS (2)
  1. DEXAMETHASONE [Suspect]
     Active Substance: DEXAMETHASONE
     Indication: Trigger points
     Dosage: UNK
  2. DEXAMETHASONE [Suspect]
     Active Substance: DEXAMETHASONE
     Indication: Myofascial pain syndrome

REACTIONS (1)
  - Expired product administered [Unknown]
